FAERS Safety Report 7723830-7 (Version None)
Quarter: 2011Q3

REPORT INFORMATION
  Report Type: 
  Country: None (occurrence: None)
  Receive Date: 20110826
  Receipt Date: 20110811
  Transmission Date: 20111222
  Serious: Yes (Other)
  Sender: FDA-Public Use
  Company Number: US-DEXPHARM-20111223

PATIENT
  Sex: Male
  Weight: 83 kg

DRUGS (3)
  1. FLUTICASONE PROPIONATE [Concomitant]
  2. OMEPRAZOLE [Suspect]
     Indication: GASTROOESOPHAGEAL REFLUX DISEASE
     Dosage: 20 MG ONCE A DAY, ORAL
     Route: 048
     Dates: start: 20110601, end: 20110701
  3. CETIRIZINE HCL [Concomitant]

REACTIONS (5)
  - DIZZINESS [None]
  - CONTUSION [None]
  - BALANCE DISORDER [None]
  - VERTIGO [None]
  - FALL [None]
